FAERS Safety Report 18754558 (Version 1)
Quarter: 2021Q1

REPORT INFORMATION
  Report Type: Spontaneous
  Country: US (occurrence: US)
  Receive Date: 20210119
  Receipt Date: 20210119
  Transmission Date: 20210419
  Serious: No
  Sender: FDA-Public Use
  Company Number: US-009507513-2101USA005706

PATIENT
  Age: 77 Year
  Sex: Female

DRUGS (2)
  1. JANUVIA [Suspect]
     Active Substance: SITAGLIPTIN PHOSPHATE
     Indication: DIABETES MELLITUS
     Dosage: ONCE DAILY
     Route: 048
     Dates: start: 2019, end: 20200105
  2. GLIPIZIDE. [Concomitant]
     Active Substance: GLIPIZIDE
     Dosage: 10 MILLIGRAM

REACTIONS (2)
  - No adverse event [Unknown]
  - Product dose omission issue [Unknown]

NARRATIVE: CASE EVENT DATE: 20200105
